FAERS Safety Report 6690363-9 (Version None)
Quarter: 2010Q2

REPORT INFORMATION
  Report Type: 
  Country: None (occurrence: None)
  Receive Date: 20100420
  Receipt Date: 20100420
  Transmission Date: 20101027
  Serious: Yes (Hospitalization)
  Sender: FDA-Public Use
  Company Number: None

PATIENT
  Age: 84 Year
  Sex: Male
  Weight: 75.84 kg

DRUGS (1)
  1. IMMUNE GLOBULIN NOS [Suspect]
     Indication: IDIOPATHIC THROMBOCYTOPENIC PURPURA
     Dosage: 72 GM ONCE IV
     Route: 042
     Dates: start: 20100331, end: 20100331

REACTIONS (3)
  - CARDIO-RESPIRATORY ARREST [None]
  - HAEMODIALYSIS [None]
  - RENAL FAILURE ACUTE [None]
